FAERS Safety Report 6086485-6 (Version None)
Quarter: 2009Q1

REPORT INFORMATION
  Report Type: 
  Country: None (occurrence: None)
  Receive Date: 20090223
  Receipt Date: 20090213
  Transmission Date: 20090719
  Serious: Yes (Hospitalization, Other)
  Sender: FDA-Public Use
  Company Number: PHHY2008GB05070

PATIENT
  Sex: Male

DRUGS (5)
  1. EXELON [Suspect]
     Indication: PARKINSON'S DISEASE
     Dosage: 1.5 MG, BID
     Route: 048
     Dates: start: 20080219, end: 20080412
  2. QUETIAPINE FUMARATE [Suspect]
     Indication: AGITATION
     Dosage: 25 MG, UNK
     Route: 048
     Dates: start: 20080229, end: 20080412
  3. QUETIAPINE FUMARATE [Suspect]
     Indication: HALLUCINATION
  4. CIPRAMIL [Suspect]
     Indication: DEPRESSION
     Dosage: 20 MG, QD
     Route: 048
     Dates: start: 20080115, end: 20080412
  5. MADOPAR [Concomitant]
     Indication: PARKINSON'S DISEASE
     Dosage: 25/100, 5 TABS/DAY
     Route: 048

REACTIONS (6)
  - BLOOD CREATINE PHOSPHOKINASE INCREASED [None]
  - BODY TEMPERATURE INCREASED [None]
  - BRADYKINESIA [None]
  - CONFUSIONAL STATE [None]
  - HYPERTONIA [None]
  - NEUROLEPTIC MALIGNANT SYNDROME [None]
